FAERS Safety Report 16500595 (Version 1)
Quarter: 2019Q3

REPORT INFORMATION
  Report Type: Spontaneous
  Country: US (occurrence: US)
  Receive Date: 20190701
  Receipt Date: 20190701
  Transmission Date: 20191004
  Serious: No
  Sender: FDA-Public Use
  Company Number: US-GLENMARK PHARMACEUTICALS-2019GMK040473

PATIENT

DRUGS (1)
  1. DICLOFENAC SODIUM GEL 3% [Suspect]
     Active Substance: DICLOFENAC SODIUM
     Indication: ACTINIC KERATOSIS
     Dosage: UNK, BID
     Route: 065
     Dates: start: 20190327

REACTIONS (2)
  - Accidental exposure to product [Unknown]
  - Application site pain [Recovering/Resolving]

NARRATIVE: CASE EVENT DATE: 20190327
